FAERS Safety Report 7964877-5 (Version None)
Quarter: 2011Q4

REPORT INFORMATION
  Report Type: 
  Country: None (occurrence: None)
  Receive Date: 20111205
  Receipt Date: 20111205
  Transmission Date: 20120403
  Serious: Yes (Other)
  Sender: FDA-Public Use
  Company Number: None

PATIENT
  Age: 31 Year
  Sex: Male
  Weight: 83.9154 kg

DRUGS (1)
  1. REVIVOGEN N/A N/A [Suspect]
     Indication: ANDROGENETIC ALOPECIA
     Dosage: 1ML 1 TOPICAL
     Route: 061
     Dates: start: 20110510, end: 20111024

REACTIONS (4)
  - PRURITUS [None]
  - SKIN EXFOLIATION [None]
  - CONDITION AGGRAVATED [None]
  - ANDROGENETIC ALOPECIA [None]
